FAERS Safety Report 7233023-8 (Version None)
Quarter: 2011Q1

REPORT INFORMATION
  Report Type: 
  Country: None (occurrence: None)
  Receive Date: 20110119
  Receipt Date: 20110110
  Transmission Date: 20110831
  Serious: Yes (Other)
  Sender: FDA-Public Use
  Company Number: FR-BAXTER-2011BH001021

PATIENT
  Age: 35 Year
  Sex: Female
  Weight: 52 kg

DRUGS (15)
  1. FLUOROURACIL [Suspect]
     Indication: NEOPLASM MALIGNANT
     Route: 065
     Dates: start: 20100914, end: 20100914
  2. EPIRUBICIN HYDROCHLORIDE [Suspect]
     Route: 065
     Dates: start: 20100713, end: 20100713
  3. FLUOROURACIL [Suspect]
     Route: 065
     Dates: start: 20100804, end: 20100804
  4. EPIRUBICIN HYDROCHLORIDE [Suspect]
     Route: 065
     Dates: start: 20100824, end: 20100824
  5. CYCLOPHOSPHAMIDE [Suspect]
     Route: 065
     Dates: start: 20100804, end: 20100804
  6. CYCLOPHOSPHAMIDE [Suspect]
     Route: 065
     Dates: start: 20100713, end: 20100713
  7. CYCLOPHOSPHAMIDE [Suspect]
     Indication: NEOPLASM MALIGNANT
     Route: 065
     Dates: start: 20100914, end: 20100914
  8. FLUOROURACIL [Suspect]
     Route: 065
     Dates: start: 20100713, end: 20100713
  9. PACLITAXEL [Suspect]
     Route: 065
     Dates: start: 20101012, end: 20101012
  10. CYCLOPHOSPHAMIDE [Suspect]
     Route: 065
     Dates: start: 20100824, end: 20100824
  11. EPIRUBICIN HYDROCHLORIDE [Suspect]
     Route: 065
     Dates: start: 20100814, end: 20100814
  12. PACLITAXEL [Suspect]
     Route: 065
     Dates: start: 20101019, end: 20101019
  13. EPIRUBICIN HYDROCHLORIDE [Suspect]
     Indication: NEOPLASM MALIGNANT
     Route: 065
     Dates: start: 20100914, end: 20100914
  14. FLUOROURACIL [Suspect]
     Route: 065
     Dates: start: 20100824, end: 20100824
  15. PACLITAXEL [Suspect]
     Indication: PRODUCT USED FOR UNKNOWN INDICATION
     Route: 065
     Dates: start: 20101026, end: 20101026

REACTIONS (2)
  - DRUG EXPOSURE DURING PREGNANCY [None]
  - THREATENED LABOUR [None]
